FAERS Safety Report 5322402-1 (Version None)
Quarter: 2007Q2

REPORT INFORMATION
  Report Type: 
  Country: None (occurrence: None)
  Receive Date: 20070511
  Receipt Date: 20070502
  Transmission Date: 20071010
  Serious: Yes (Other)
  Sender: FDA-Public Use
  Company Number: US-ELI_LILLY_AND_COMPANY-US200705000510

PATIENT
  Age: 67 Year
  Sex: Male

DRUGS (4)
  1. FORTEO [Suspect]
     Indication: SPINAL FRACTURE
     Dates: start: 20060601
  2. TIMOLOL MALEATE [Concomitant]
     Indication: GLAUCOMA
  3. XALATAN [Concomitant]
     Indication: GLAUCOMA
  4. COSOPT [Concomitant]
     Indication: GLAUCOMA

REACTIONS (2)
  - CYSTITIS [None]
  - TRANSIENT ISCHAEMIC ATTACK [None]
